FAERS Safety Report 18446017 (Version 10)
Quarter: 2022Q3

REPORT INFORMATION
  Report Type: Report from Study
  Country: CA (occurrence: CA)
  Receive Date: 20201030
  Receipt Date: 20220824
  Transmission Date: 20221026
  Serious: Yes (Hospitalization, Other)
  Sender: FDA-Public Use
  Company Number: CA-TAKEDA-CA202026940

PATIENT
  Age: 11 Year
  Sex: Male
  Weight: 30 kg

DRUGS (37)
  1. TEDUGLUTIDE [Suspect]
     Active Substance: TEDUGLUTIDE
     Indication: Short-bowel syndrome
     Dosage: 1.28 MILLIGRAM, QD
     Route: 065
     Dates: start: 20200815
  2. TEDUGLUTIDE [Suspect]
     Active Substance: TEDUGLUTIDE
     Indication: Short-bowel syndrome
     Dosage: 1.28 MILLIGRAM, QD
     Route: 065
     Dates: start: 20200815
  3. TEDUGLUTIDE [Suspect]
     Active Substance: TEDUGLUTIDE
     Indication: Short-bowel syndrome
     Dosage: 1.28 MILLIGRAM, QD
     Route: 065
     Dates: start: 20200815
  4. TEDUGLUTIDE [Suspect]
     Active Substance: TEDUGLUTIDE
     Indication: Short-bowel syndrome
     Dosage: 1.28 MILLIGRAM, QD
     Route: 065
     Dates: start: 20200815
  5. TEDUGLUTIDE [Suspect]
     Active Substance: TEDUGLUTIDE
     Dosage: 1.4 MILLIGRAM, QD
     Route: 065
     Dates: start: 20200815
  6. TEDUGLUTIDE [Suspect]
     Active Substance: TEDUGLUTIDE
     Dosage: 1.4 MILLIGRAM, QD
     Route: 065
     Dates: start: 20200815
  7. TEDUGLUTIDE [Suspect]
     Active Substance: TEDUGLUTIDE
     Dosage: 1.4 MILLIGRAM, QD
     Route: 065
     Dates: start: 20200815
  8. TEDUGLUTIDE [Suspect]
     Active Substance: TEDUGLUTIDE
     Dosage: 1.4 MILLIGRAM, QD
     Route: 065
     Dates: start: 20200815
  9. TEDUGLUTIDE [Suspect]
     Active Substance: TEDUGLUTIDE
     Dosage: 1.4 MILLIGRAM, QD
     Route: 065
     Dates: start: 20200815
  10. TEDUGLUTIDE [Suspect]
     Active Substance: TEDUGLUTIDE
     Dosage: 1.4 MILLIGRAM, QD
     Route: 065
     Dates: start: 20200815
  11. TEDUGLUTIDE [Suspect]
     Active Substance: TEDUGLUTIDE
     Dosage: 1.4 MILLIGRAM, QD
     Route: 065
     Dates: start: 20200815
  12. TEDUGLUTIDE [Suspect]
     Active Substance: TEDUGLUTIDE
     Dosage: 1.4 MILLIGRAM, QD
     Route: 065
     Dates: start: 20200815
  13. TEDUGLUTIDE [Suspect]
     Active Substance: TEDUGLUTIDE
     Dosage: 1.40 MILLIGRAM, QD
     Route: 065
     Dates: start: 20200815
  14. TEDUGLUTIDE [Suspect]
     Active Substance: TEDUGLUTIDE
     Dosage: 1.40 MILLIGRAM, QD
     Route: 065
     Dates: start: 20200815
  15. TEDUGLUTIDE [Suspect]
     Active Substance: TEDUGLUTIDE
     Dosage: 1.40 MILLIGRAM, QD
     Route: 065
     Dates: start: 20200815
  16. TEDUGLUTIDE [Suspect]
     Active Substance: TEDUGLUTIDE
     Dosage: 1.40 MILLIGRAM, QD
     Route: 065
     Dates: start: 20200815
  17. TEDUGLUTIDE [Suspect]
     Active Substance: TEDUGLUTIDE
     Dosage: 1.5 MILLIGRAM, QD
     Route: 058
     Dates: start: 20200815
  18. TEDUGLUTIDE [Suspect]
     Active Substance: TEDUGLUTIDE
     Dosage: 1.5 MILLIGRAM, QD
     Route: 058
     Dates: start: 20200815
  19. TEDUGLUTIDE [Suspect]
     Active Substance: TEDUGLUTIDE
     Dosage: 1.5 MILLIGRAM, QD
     Route: 058
     Dates: start: 20200815
  20. TEDUGLUTIDE [Suspect]
     Active Substance: TEDUGLUTIDE
     Dosage: 1.5 MILLIGRAM, QD
     Route: 058
     Dates: start: 20200815
  21. TPN [Concomitant]
     Active Substance: AMINO ACIDS\DEXTROSE\ELECTROLYTES NOS\SOYBEAN OIL
     Indication: Product used for unknown indication
     Dosage: 400 MILLILITER
     Route: 065
  22. TPN [Concomitant]
     Active Substance: AMINO ACIDS\DEXTROSE\ELECTROLYTES NOS\SOYBEAN OIL
     Dosage: 1400 MILLILITER
     Route: 065
  23. TPN [Concomitant]
     Active Substance: AMINO ACIDS\DEXTROSE\ELECTROLYTES NOS\SOYBEAN OIL
     Dosage: 1400 MILLILITER
     Route: 065
     Dates: start: 20201018
  24. FAT EMULSION NOS [Concomitant]
     Active Substance: EGG PHOSPHOLIPIDS\SAFFLOWER OIL\SOYBEAN OIL
     Indication: Product used for unknown indication
     Dosage: 400 MILLILITER
     Route: 065
  25. FAT EMULSION NOS [Concomitant]
     Active Substance: EGG PHOSPHOLIPIDS\SAFFLOWER OIL\SOYBEAN OIL
     Dosage: 1400 MILLILITER
     Route: 065
  26. PEPTAMEN [Concomitant]
     Indication: Product used for unknown indication
     Dosage: 1000 MILLILITER
     Route: 065
  27. PEDIASURE COMPLETE [Concomitant]
     Indication: Product used for unknown indication
     Dosage: 1460 MILLILITER, QD
     Route: 065
     Dates: start: 20200817
  28. PEDIASURE COMPLETE [Concomitant]
     Dosage: 1195 MILLILITER, QD
     Route: 065
     Dates: start: 20200820
  29. PEDIASURE COMPLETE [Concomitant]
     Dosage: 1169 MILLILITER, QD
     Dates: start: 20200824
  30. PEDIASURE COMPLETE [Concomitant]
     Dosage: 1195 MILLILITER, QD
     Route: 065
     Dates: start: 20200824
  31. PEDIASURE COMPLETE [Concomitant]
     Dosage: 1500 MILLILITER, QD
     Route: 065
     Dates: start: 20200831
  32. LOVENOX [Concomitant]
     Active Substance: ENOXAPARIN SODIUM
     Indication: Product used for unknown indication
     Dosage: 0.36 MILLILITER, BID
     Route: 065
  33. LOPERAMIDE [Concomitant]
     Active Substance: LOPERAMIDE
     Indication: Product used for unknown indication
     Dosage: 6 MILLIGRAM, BID
     Route: 050
  34. IRON [Concomitant]
     Active Substance: IRON
     Indication: Product used for unknown indication
     Dosage: 1.5 MILLILITER, BID
     Route: 050
  35. VITAMIN B12 [Concomitant]
     Active Substance: CYANOCOBALAMIN
     Indication: Product used for unknown indication
     Dosage: 0.5 MILLILITER
     Route: 065
  36. VITAMIN B12 [Concomitant]
     Active Substance: CYANOCOBALAMIN
     Dosage: 0.5 MILLILITER, INJECTION ONCE/MONTH
     Route: 050
  37. ENOXAPARIN [Concomitant]
     Active Substance: ENOXAPARIN
     Dosage: UNK
     Route: 065

REACTIONS (21)
  - Device dislocation [Unknown]
  - Neurogenic bowel [Unknown]
  - Blood pressure decreased [Unknown]
  - Weight increased [Unknown]
  - Constipation [Unknown]
  - Infrequent bowel movements [Recovered/Resolved]
  - Abnormal faeces [Unknown]
  - Diarrhoea [Unknown]
  - Malaise [Recovered/Resolved]
  - Muscle spasms [Recovered/Resolved]
  - Pollakiuria [Not Recovered/Not Resolved]
  - Faeces soft [Unknown]
  - Hypophagia [Unknown]
  - Nocturia [Unknown]
  - Dysphagia [Unknown]
  - Faeces discoloured [Unknown]
  - Frequent bowel movements [Unknown]
  - Sleep disorder [Unknown]
  - Flatulence [Recovered/Resolved]
  - Abdominal pain [Unknown]
  - Product dose omission issue [Unknown]

NARRATIVE: CASE EVENT DATE: 20200101
